FAERS Safety Report 24052869 (Version 1)
Quarter: 2024Q3

REPORT INFORMATION
  Report Type: Other
  Country: PT (occurrence: PT)
  Receive Date: 20240705
  Receipt Date: 20240705
  Transmission Date: 20241016
  Serious: Yes (Hospitalization, Other)
  Sender: BIONPHARMA
  Company Number: PT-Bion-013364

PATIENT
  Age: 63 Year
  Sex: Female

DRUGS (3)
  1. VALPROIC ACID [Suspect]
     Active Substance: VALPROIC ACID
     Indication: Bipolar disorder
     Dosage: STARTING WITH 500MG, FOLLOWED BY 750MG, WITH EACH ADJUSTMENT LASTING 8 DAYS
  2. QUETIAPINE [Concomitant]
     Active Substance: QUETIAPINE
     Indication: Bipolar disorder
  3. ARIPIPRAZOLE [Concomitant]
     Active Substance: ARIPIPRAZOLE
     Indication: Bipolar disorder

REACTIONS (2)
  - Drug interaction [Unknown]
  - Encephalopathy [Recovering/Resolving]
